FAERS Safety Report 19866475 (Version 15)
Quarter: 2023Q4

REPORT INFORMATION
  Report Type: Other
  Country: DE (occurrence: None)
  Receive Date: 20210922
  Receipt Date: 20231211
  Transmission Date: 20240110
  Serious: Yes (Hospitalization, Other)
  Sender: FDA-Public Use
  Company Number: DE-ROCHE-2914332

PATIENT
  Age: 66 Year
  Sex: Male

DRUGS (14)
  1. RITUXIMAB [Suspect]
     Active Substance: RITUXIMAB
     Indication: Neuromyelitis optica spectrum disorder
     Dosage: SUBSEQUENT DOSES WAS ADMINISTERED ON,03/08/2021 18/AUG/2021 AND LAST DOSE ADMINISTERED ON 31/AUG/202
     Route: 042
     Dates: start: 20210803, end: 20220831
  2. RITUXIMAB [Suspect]
     Active Substance: RITUXIMAB
     Route: 042
     Dates: start: 20210818
  3. RITUXIMAB [Suspect]
     Active Substance: RITUXIMAB
     Dosage: FREQUENCY TIME: 378 DAYS
     Route: 042
     Dates: start: 20220831, end: 20220831
  4. ENOXAPARIN SODIUM [Concomitant]
     Active Substance: ENOXAPARIN SODIUM
  5. CLONIDINE [Concomitant]
     Active Substance: CLONIDINE
  6. PREDNISOLONE [Concomitant]
     Active Substance: PREDNISOLONE
  7. PALEXIA [Concomitant]
     Active Substance: TAPENTADOL HYDROCHLORIDE
  8. MIRTAZAPINE [Concomitant]
     Active Substance: MIRTAZAPINE
  9. LACTULOSE [Concomitant]
     Active Substance: LACTULOSE
  10. PREGABALIN [Concomitant]
     Active Substance: PREGABALIN
     Dosage: 1-2-2-AS NEEDED 1
  11. CITALOPRAM [Concomitant]
     Active Substance: CITALOPRAM HYDROBROMIDE
     Route: 065
  12. ESOMEPRAZOLE [Concomitant]
     Active Substance: ESOMEPRAZOLE
     Dosage: 1-0-1
  13. CHOLECALCIFEROL [Concomitant]
     Active Substance: CHOLECALCIFEROL
  14. DULOXETINE [Concomitant]
     Active Substance: DULOXETINE

REACTIONS (17)
  - Pneumonia [Recovered/Resolved]
  - Off label use [Unknown]
  - Pseudomonas infection [Not Recovered/Not Resolved]
  - COVID-19 [Recovered/Resolved]
  - Cystitis noninfective [Recovered/Resolved]
  - Sepsis [Unknown]
  - Immunodeficiency [Recovered/Resolved]
  - B-lymphocyte count abnormal [Not Recovered/Not Resolved]
  - Depressed mood [Recovered/Resolved]
  - Obstructive airways disorder [Recovered/Resolved]
  - Dyspnoea [Recovered/Resolved]
  - Pain in extremity [Not Recovered/Not Resolved]
  - Sleep apnoea syndrome [Recovered/Resolved]
  - B-lymphocyte count increased [Not Recovered/Not Resolved]
  - Multiple sclerosis relapse [Recovered/Resolved]
  - Decreased appetite [Recovered/Resolved]
  - Pyrexia [Recovered/Resolved]

NARRATIVE: CASE EVENT DATE: 20210803
